FAERS Safety Report 25647786 (Version 4)
Quarter: 2025Q4

REPORT INFORMATION
  Report Type: Spontaneous
  Country: JP (occurrence: JP)
  Receive Date: 20250806
  Receipt Date: 20251212
  Transmission Date: 20260118
  Serious: Yes (Death)
  Sender: MERCK SHARP & DOHME LLC
  Company Number: JP-009507513-2316128

PATIENT
  Age: 7 Decade
  Sex: Male

DRUGS (2)
  1. KEYTRUDA [Suspect]
     Active Substance: PEMBROLIZUMAB
     Indication: Renal cell carcinoma
     Dosage: 200MG ONCE EVERY 3 WEEKS, 1 COURSE?LAST DOSE ADMINISTERED IN JULY 2025
     Route: 041
     Dates: start: 20250702
  2. LENVIMA [Suspect]
     Active Substance: LENVATINIB
     Indication: Renal cell carcinoma
     Dosage: 20MG ONCE EVERY DAY; STRENGTH: 10 MG
     Route: 048
     Dates: start: 20250702, end: 20250711

REACTIONS (4)
  - Blood creatine phosphokinase increased [Fatal]
  - Respiratory failure [Fatal]
  - Cardiac failure [Fatal]
  - Immune-mediated myositis [Fatal]

NARRATIVE: CASE EVENT DATE: 20250715
